FAERS Safety Report 5754352-0 (Version None)
Quarter: 2008Q2

REPORT INFORMATION
  Report Type: 
  Country: None (occurrence: None)
  Receive Date: 20080530
  Receipt Date: 20080520
  Transmission Date: 20081010
  Serious: Yes (Other)
  Sender: FDA-Public Use
  Company Number: US-PFIZER INC-2008013243

PATIENT
  Sex: Male
  Weight: 64.4 kg

DRUGS (10)
  1. LYRICA [Suspect]
     Indication: PAIN IN EXTREMITY
  2. NEURONTIN [Suspect]
  3. ACETYLSALICYLIC ACID SRT [Concomitant]
  4. VITAMIN CAP [Concomitant]
  5. MONTELUKAST SODIUM [Concomitant]
  6. ATROVENT [Concomitant]
     Indication: ASTHMA
  7. VERAPAMIL [Concomitant]
  8. LIPITOR [Concomitant]
  9. NITROGLYCERIN [Concomitant]
  10. FLUTICASONE [Concomitant]
     Route: 045

REACTIONS (13)
  - ANXIETY [None]
  - DEPRESSION [None]
  - DRUG INEFFECTIVE [None]
  - FEELING DRUNK [None]
  - MEMORY IMPAIRMENT [None]
  - PAIN [None]
  - PANIC ATTACK [None]
  - SCOTOMA [None]
  - STOMACH DISCOMFORT [None]
  - SUICIDE ATTEMPT [None]
  - UNEVALUABLE EVENT [None]
  - VISION BLURRED [None]
  - WRONG TECHNIQUE IN DRUG USAGE PROCESS [None]
